FAERS Safety Report 10522693 (Version 1)
Quarter: 2014Q4

REPORT INFORMATION
  Report Type: Spontaneous
  Country: US (occurrence: None)
  Receive Date: 20141014
  Receipt Date: 20141014
  Transmission Date: 20150528
  Serious: Yes (Other)
  Sender: FDA-Public Use
  Company Number: 2570219

PATIENT
  Age: 52 Year
  Sex: Female

DRUGS (4)
  1. IRINOTECAN HYDROCHLORIDE. [Suspect]
     Active Substance: IRINOTECAN HYDROCHLORIDE
     Indication: GASTROINTESTINAL CARCINOMA
     Dates: start: 20140310
  2. FLUOROURACIL. [Suspect]
     Active Substance: FLUOROURACIL
     Indication: GASTROINTESTINAL CARCINOMA
     Dates: start: 20131202
  3. CALCIUM FOLINATE [Suspect]
     Active Substance: LEUCOVORIN CALCIUM
     Indication: GASTROINTESTINAL CARCINOMA
     Dates: start: 20140310
  4. BEVACIZUMAB [Suspect]
     Active Substance: BEVACIZUMAB
     Indication: BREAST CANCER
     Dates: start: 20140107

REACTIONS (6)
  - Muscular weakness [None]
  - Asthenia [None]
  - Depressed level of consciousness [None]
  - Loss of consciousness [None]
  - Fall [None]
  - Musculoskeletal stiffness [None]

NARRATIVE: CASE EVENT DATE: 20140825
